FAERS Safety Report 7730466-0 (Version None)
Quarter: 2011Q3

REPORT INFORMATION
  Report Type: 
  Country: None (occurrence: None)
  Receive Date: 20110825
  Receipt Date: 20110822
  Transmission Date: 20111222
  Serious: Yes (Hospitalization)
  Sender: FDA-Public Use
  Company Number: 2011029595

PATIENT
  Age: 65 Year
  Sex: Male
  Weight: 74.3899 kg

DRUGS (16)
  1. LOVAZA [Concomitant]
  2. POTASSIUM CHLORIDE [Concomitant]
  3. VITAMIN E (ASCORBIC ACID) [Concomitant]
  4. B COMPLEX/FOLIC ACID (FLIC ACID W/VITAMIN B NOS) [Concomitant]
  5. BENICAR [Concomitant]
  6. SPIRIVA [Concomitant]
  7. ASCORBIC ACID [Concomitant]
  8. ADVAIR DISKUS 100/50 [Concomitant]
  9. PROSCAR [Concomitant]
  10. ALBUTEROL [Concomitant]
  11. ZEMAIRA [Suspect]
     Indication: ENZYME ABNORMALITY
     Dosage: SEE IMAGE
     Route: 042
     Dates: start: 20110815
  12. ZEMAIRA [Suspect]
     Indication: ALPHA-1 ANTI-TRYPSIN DEFICIENCY
     Dosage: SEE IMAGE
     Route: 042
     Dates: start: 20110815
  13. ZEMAIRA [Suspect]
     Indication: ENZYME ABNORMALITY
     Dosage: SEE IMAGE
     Route: 042
     Dates: start: 20040618
  14. ZEMAIRA [Suspect]
     Indication: ALPHA-1 ANTI-TRYPSIN DEFICIENCY
     Dosage: SEE IMAGE
     Route: 042
     Dates: start: 20040618
  15. SODIUM CHLORIDE 0.9% [Concomitant]
  16. EPINEPHRINE [Concomitant]

REACTIONS (1)
  - THROMBOSIS [None]
